FAERS Safety Report 23499807 (Version 1)
Quarter: 2024Q1

REPORT INFORMATION
  Report Type: Spontaneous
  Country: HK (occurrence: HK)
  Receive Date: 20240208
  Receipt Date: 20240208
  Transmission Date: 20240410
  Serious: Yes (Other)
  Sender: FDA-Public Use
  Company Number: HK-STRIDES ARCOLAB LIMITED-2024SP001305

PATIENT
  Age: 66 Year
  Sex: Female

DRUGS (3)
  1. METHOXSALEN [Suspect]
     Active Substance: METHOXSALEN
     Indication: Supplementation therapy
     Dosage: UNK
     Route: 048
  2. HERBALS\VITAMINS [Suspect]
     Active Substance: HERBALS\VITAMINS
     Indication: Supplementation therapy
     Dosage: UNK (TRACES OF METHOXSALEN, AND UNSPECIFIED PSORALENS AND BENIGN HERBAL MARKERS WERE FOUND IN THIS S
     Route: 048
  3. CALCIUM [Concomitant]
     Active Substance: CALCIUM
     Indication: Mineral supplementation
     Dosage: UNK
     Route: 065

REACTIONS (1)
  - Liver injury [Recovered/Resolved]
